FAERS Safety Report 7698940-3 (Version None)
Quarter: 2011Q3

REPORT INFORMATION
  Report Type: 
  Country: None (occurrence: None)
  Receive Date: 20110819
  Receipt Date: 20110811
  Transmission Date: 20111222
  Serious: Yes (Hospitalization)
  Sender: FDA-Public Use
  Company Number: FR-GENENTECH-316333

PATIENT
  Sex: Male
  Weight: 55 kg

DRUGS (16)
  1. CYTARABINE [Suspect]
     Indication: MANTLE CELL LYMPHOMA
     Dosage: UNK MG, UNK
     Route: 042
     Dates: start: 20101216
  2. CYTARABINE [Suspect]
     Dosage: UNK
     Route: 042
     Dates: start: 20110311
  3. DEXAMETHASONE [Suspect]
     Dosage: UNK MG, UNK
     Route: 042
     Dates: start: 20110131
  4. RITUXIMAB [Suspect]
     Dosage: 600 MG, Q21D
     Route: 042
     Dates: start: 20110311
  5. DEXAMETHASONE [Suspect]
     Indication: MANTLE CELL LYMPHOMA
     Dosage: UNK MG, UNK
     Route: 042
     Dates: start: 20101216
  6. DEXAMETHASONE [Suspect]
     Dosage: UNK
     Route: 042
     Dates: start: 20110312
  7. RITUXIMAB [Suspect]
     Indication: MANTLE CELL LYMPHOMA
     Dosage: 600 MG, Q21D
     Route: 042
     Dates: start: 20101216
  8. RITUXIMAB [Suspect]
     Dosage: 600 MG, Q21D
     Route: 042
     Dates: start: 20110131
  9. CISPLATIN [Suspect]
     Indication: MANTLE CELL LYMPHOMA
     Route: 065
  10. CYTARABINE [Suspect]
     Dosage: UNK MG, UNK
     Route: 042
     Dates: start: 20110131
  11. VALACYCLOVIR HYDROCHLORIDE [Concomitant]
     Indication: ANTIVIRAL PROPHYLAXIS
     Dosage: UNK
     Route: 048
     Dates: start: 20101217
  12. RITUXIMAB [Suspect]
     Dosage: 600 MG, Q21D
     Route: 042
     Dates: start: 20110106
  13. DEXAMETHASONE [Suspect]
     Dosage: UNK MG, UNK
     Route: 042
     Dates: start: 20110106
  14. OXALIPLATIN [Concomitant]
     Indication: MANTLE CELL LYMPHOMA
     Dosage: 165 MG, Q21D
     Route: 042
     Dates: start: 20101216
  15. BACTRIM DS [Concomitant]
     Indication: ANTIBIOTIC PROPHYLAXIS
     Dosage: UNK
     Route: 048
     Dates: start: 20101217
  16. CYTARABINE [Suspect]
     Dosage: UNK MG, UNK
     Route: 042
     Dates: start: 20110106

REACTIONS (3)
  - GENERAL PHYSICAL HEALTH DETERIORATION [None]
  - PNEUMONIA PNEUMOCOCCAL [None]
  - STAPHYLOCOCCAL BACTERAEMIA [None]
